FAERS Safety Report 20570885 (Version 1)
Quarter: 2022Q1

REPORT INFORMATION
  Report Type: Spontaneous
  Country: US (occurrence: US)
  Receive Date: 20220309
  Receipt Date: 20220309
  Transmission Date: 20220424
  Serious: No
  Sender: FDA-Public Use
  Company Number: US-BAUSCH-BL-2022-005939

PATIENT
  Sex: Female

DRUGS (3)
  1. PYRIDOSTIGMINE BROMIDE [Suspect]
     Active Substance: PYRIDOSTIGMINE BROMIDE
     Indication: Product used for unknown indication
     Route: 048
  2. PYRIDOSTIGMINE BROMIDE EXTENDED RELEASE [Suspect]
     Active Substance: PYRIDOSTIGMINE BROMIDE
     Indication: Product used for unknown indication
     Dosage: EXTENDED-RELEASE TABLET
     Route: 048
  3. PYRIDOSTIGMINE BROMIDE [Concomitant]
     Active Substance: PYRIDOSTIGMINE BROMIDE
     Indication: Product used for unknown indication
     Dosage: PYRIDOSTIGMINE BROMIDE ORAL SOLUTION
     Route: 048

REACTIONS (3)
  - Ill-defined disorder [Recovered/Resolved]
  - Lactose intolerance [Unknown]
  - Therapeutic product effect decreased [Unknown]
